FAERS Safety Report 23536102 (Version 1)
Quarter: 2024Q1

REPORT INFORMATION
  Report Type: Spontaneous
  Country: US (occurrence: US)
  Receive Date: 20240219
  Receipt Date: 20240219
  Transmission Date: 20240410
  Serious: Yes (Death, Hospitalization, Other)
  Sender: FDA-Public Use
  Company Number: US-AMGEN-USASP2024029278

PATIENT
  Age: 56 Year
  Sex: Female

DRUGS (8)
  1. PEGFILGRASTIM [Suspect]
     Active Substance: PEGFILGRASTIM
     Indication: Prophylaxis
     Dosage: UNK
     Route: 065
  2. CISPLATIN [Concomitant]
     Active Substance: CISPLATIN
     Dosage: 100 MILLIGRAM/SQ. METER
  3. CARBOPLATIN [Concomitant]
     Active Substance: CARBOPLATIN
     Dosage: 100 MILLIGRAM/SQ. METER, DAYS 1-3
     Dates: start: 20161229, end: 20170414
  4. ETOPOSIDE [Concomitant]
     Active Substance: ETOPOSIDE
     Dosage: 100 MILLIGRAM/SQ. METER, DAYS 1-3
     Dates: start: 20161229, end: 20170414
  5. PEMBROLIZUMAB [Concomitant]
     Active Substance: PEMBROLIZUMAB
     Dosage: 200 MILLIGRAM, 24 DAYS, 2 MONTHS 3 DAYS
     Dates: start: 20170503, end: 20170705
  6. CELECOXIB [Concomitant]
     Active Substance: CELECOXIB
     Dosage: 200 MILLIGRAM, QD
     Dates: start: 20170816, end: 20170908
  7. IPILIMUMAB [Concomitant]
     Active Substance: IPILIMUMAB
     Dosage: 1 MILLIGRAM/KILOGRAM, EVERY 3 WEEKS FOR THE 6TH AND 7TH CYCLES OF TREATMENT
     Dates: start: 20170816, end: 20170908
  8. PREDNISONE [Concomitant]
     Active Substance: PREDNISONE
     Dosage: 1 MILLIMOLE PER KILOGRAM, QD

REACTIONS (9)
  - COVID-19 [Fatal]
  - Metastases to liver [Unknown]
  - Polyneuropathy [Unknown]
  - Inappropriate antidiuretic hormone secretion [Unknown]
  - Metastases to meninges [Unknown]
  - Hepatic failure [Unknown]
  - Autoimmune hepatitis [Unknown]
  - Nasal sinus cancer [Unknown]
  - Immune-mediated dermatitis [Unknown]
